FAERS Safety Report 13301851 (Version 1)
Quarter: 2017Q1

REPORT INFORMATION
  Report Type: Spontaneous
  Country: US (occurrence: US)
  Receive Date: 20170307
  Receipt Date: 20170307
  Transmission Date: 20170428
  Serious: Yes (Death)
  Sender: FDA-Public Use
  Company Number: US-ELI_LILLY_AND_COMPANY-US201702011683

PATIENT

DRUGS (4)
  1. VITAMIN B12 [Concomitant]
     Active Substance: CYANOCOBALAMIN
     Indication: VITAMIN SUPPLEMENTATION
     Dosage: UNK, CYCLICAL
     Route: 065
  2. TRAMETINIB [Suspect]
     Active Substance: TRAMETINIB
     Indication: NON-SMALL CELL LUNG CANCER METASTATIC
     Dosage: 1.5 MG, QD
     Route: 048
  3. PEMETREXED [Suspect]
     Active Substance: PEMETREXED
     Indication: NON-SMALL CELL LUNG CANCER METASTATIC
     Dosage: 500 MG/M2, CYCLICAL
     Route: 042
  4. FOLATE [Concomitant]
     Active Substance: FOLATE SODIUM
     Indication: VITAMIN SUPPLEMENTATION
     Dosage: UNK, CYCLICAL
     Route: 065

REACTIONS (1)
  - Cardiogenic shock [Fatal]
